FAERS Safety Report 7474948-8 (Version None)
Quarter: 2011Q1

REPORT INFORMATION
  Report Type: 
  Country: None (occurrence: None)
  Receive Date: 20110302
  Receipt Date: 20101116
  Transmission Date: 20110831
  Serious: Yes (Death, Other)
  Sender: FDA-Public Use
  Company Number: 163-21880-10091919

PATIENT
  Age: 35 Year
  Sex: Male

DRUGS (1)
  1. REVLIMID [Suspect]
     Indication: NON-HODGKIN'S LYMPHOMA REFRACTORY
     Dosage: 15 MG, DAILY X 21 DAYS, PO
     Route: 048
     Dates: start: 20100819, end: 20100101

REACTIONS (4)
  - NON-HODGKIN'S LYMPHOMA [None]
  - TREATMENT FAILURE [None]
  - SEPSIS [None]
  - MALAISE [None]
